FAERS Safety Report 7984908-6 (Version None)
Quarter: 2011Q4

REPORT INFORMATION
  Report Type: 
  Country: None (occurrence: None)
  Receive Date: 20111216
  Receipt Date: 20111006
  Transmission Date: 20120403
  Serious: No
  Sender: FDA-Public Use
  Company Number: US-ALLERGAN-1113241US

PATIENT
  Age: 62 Year
  Sex: Female

DRUGS (4)
  1. LATISSE [Suspect]
     Indication: GROWTH OF EYELASHES
     Dosage: 1 GTT, QHS
     Route: 061
     Dates: start: 20110601, end: 20111004
  2. SYSTANE [Concomitant]
     Indication: DRY EYE
     Dosage: UNK
  3. GELNIQUE [Suspect]
     Indication: THERAPEUTIC SKIN CARE TOPICAL
     Dosage: UNK
     Route: 061
  4. BINK GEL TEARS [Concomitant]
     Indication: DRY EYE
     Dosage: UNK

REACTIONS (3)
  - WRONG TECHNIQUE IN DRUG USAGE PROCESS [None]
  - EYELID OEDEMA [None]
  - DRY EYE [None]
